FAERS Safety Report 6236608-0 (Version None)
Quarter: 2009Q2

REPORT INFORMATION
  Report Type: 
  Country: None (occurrence: None)
  Receive Date: 20090619
  Receipt Date: 20080401
  Transmission Date: 20091009
  Serious: No
  Sender: FDA-Public Use
  Company Number: US-ASTRAZENECA-2008UW06509

PATIENT
  Age: 68 Year
  Sex: Female

DRUGS (6)
  1. ATACAND [Suspect]
     Indication: HYPERTENSION
     Route: 048
     Dates: start: 20080301
  2. AMARYL [Concomitant]
  3. LOVAZA [Concomitant]
  4. VITAMIN E [Concomitant]
  5. GINKO BALOBA [Concomitant]
  6. VITAMIN B COMPLEX WITH C [Concomitant]

REACTIONS (5)
  - ABDOMINAL PAIN [None]
  - DIARRHOEA [None]
  - FLUSHING [None]
  - HAEMORRHOIDAL HAEMORRHAGE [None]
  - HYPERHIDROSIS [None]
